FAERS Safety Report 6255443-0 (Version None)
Quarter: 2009Q3

REPORT INFORMATION
  Report Type: 
  Country: None (occurrence: None)
  Receive Date: 20090702
  Receipt Date: 20090630
  Transmission Date: 20100115
  Serious: Yes (Hospitalization)
  Sender: FDA-Public Use
  Company Number: TW-ABBOTT-09P-153-0568100-00

PATIENT
  Sex: Female
  Weight: 45 kg

DRUGS (3)
  1. HUMIRA [Suspect]
     Indication: RHEUMATOID ARTHRITIS
     Route: 058
     Dates: start: 20080901, end: 20090416
  2. UNSPECIFIED MEDICATION FOR LOWERING BLOOD PRESSURE [Concomitant]
     Indication: HYPERTENSION
  3. UNSPECIFIED MEDICAITON FOR DIABETES MELLITUS [Concomitant]
     Indication: DIABETES MELLITUS

REACTIONS (2)
  - HYPOTENSION [None]
  - TUBERCULOSIS [None]
